FAERS Safety Report 7586261-9 (Version None)
Quarter: 2011Q2

REPORT INFORMATION
  Report Type: 
  Country: None (occurrence: None)
  Receive Date: 20110630
  Receipt Date: 20110630
  Transmission Date: 20111010
  Serious: No
  Sender: FDA-Public Use
  Company Number: None

PATIENT
  Sex: Male
  Weight: 72.5755 kg

DRUGS (1)
  1. AMPHETAMINES [Suspect]
     Indication: ATTENTION DEFICIT/HYPERACTIVITY DISORDER
     Dosage: 20 MG TID PO
     Route: 048
     Dates: start: 20101115, end: 20101215

REACTIONS (4)
  - IRRITABILITY [None]
  - ANXIETY [None]
  - TACHYCARDIA [None]
  - PRODUCT SOLUBILITY ABNORMAL [None]
